FAERS Safety Report 17918245 (Version 1)
Quarter: 2020Q2

REPORT INFORMATION
  Report Type: Spontaneous
  Country: US (occurrence: US)
  Receive Date: 20200619
  Receipt Date: 20200619
  Transmission Date: 20200714
  Serious: Yes (Other)
  Sender: FDA-Public Use
  Company Number: US-BRISTOL-MYERS SQUIBB COMPANY-BMS-2020-047272

PATIENT
  Age: 48 Year
  Sex: Female
  Weight: 78.47 kg

DRUGS (1)
  1. ELIQUIS [Suspect]
     Active Substance: APIXABAN
     Indication: PULMONARY EMBOLISM
     Dosage: 5 MILLIGRAM, BID
     Route: 048
     Dates: start: 20200526

REACTIONS (2)
  - Traumatic lumbar puncture [Unknown]
  - Meningitis viral [Unknown]

NARRATIVE: CASE EVENT DATE: 20200526
